FAERS Safety Report 8064190-4 (Version None)
Quarter: 2012Q1

REPORT INFORMATION
  Report Type: 
  Country: None (occurrence: None)
  Receive Date: 20120123
  Receipt Date: 20120119
  Transmission Date: 20120608
  Serious: Yes (Death)
  Sender: FDA-Public Use
  Company Number: GB-GENZYME-CLOF-1001814

PATIENT
  Sex: Male
  Weight: 79 kg

DRUGS (10)
  1. CIPROFLOXACIN [Concomitant]
     Indication: PROPHYLAXIS
     Dosage: 200 MG, QD
     Route: 048
     Dates: start: 20071113
  2. ITRACONAZOLE [Concomitant]
     Indication: PROPHYLAXIS
     Dosage: 200 MG, BID
     Route: 048
     Dates: start: 20071113
  3. NYSTATIN [Concomitant]
     Indication: PROPHYLAXIS
     Dosage: 1 ML, QID
     Route: 060
     Dates: start: 20071113
  4. OMEPRAZOLE [Concomitant]
     Indication: PROPHYLAXIS
     Dosage: UNK
     Route: 048
     Dates: start: 20071113
  5. PREDNISOLONE SODIUM PHOSPHATE [Concomitant]
     Indication: PROPHYLAXIS
     Dosage: 0.5 %, QID
     Route: 061
     Dates: start: 20071113
  6. EVOLTRA [Suspect]
     Indication: ACUTE MYELOID LEUKAEMIA
     Dosage: 39 MG, QDX5, DAYS 1-5
     Route: 042
     Dates: start: 20061212
  7. PHENOBARBITAL TAB [Concomitant]
     Indication: EPILEPSY
     Dosage: 30 MG, BID
     Route: 048
  8. CYCLIZINE [Concomitant]
     Indication: NAUSEA
     Dosage: 50 MG, TID
     Route: 048
     Dates: start: 20071113
  9. PHENYTOIN [Concomitant]
     Indication: EPILEPSY
     Dosage: 100 MG, BID
     Route: 048
  10. EVOLTRA [Suspect]
     Dosage: 39 MG, QDX5 DAYS 1-5
     Route: 042
     Dates: start: 20080502

REACTIONS (1)
  - ACUTE MYELOID LEUKAEMIA [None]
